FAERS Safety Report 8103259-2 (Version None)
Quarter: 2012Q1

REPORT INFORMATION
  Report Type: 
  Country: None (occurrence: None)
  Receive Date: 20120127
  Receipt Date: 20120116
  Transmission Date: 20120608
  Serious: Yes (Hospitalization)
  Sender: FDA-Public Use
  Company Number: 1000027402

PATIENT
  Sex: Female

DRUGS (3)
  1. FERROFUMARAAT (FERROUS FUMARATE) [Concomitant]
  2. OMEPRAZOLE [Concomitant]
  3. LEXAPRO [Suspect]
     Dosage: 20 MG (20 MG,1 IN 1 D), TRANSPLACENTAL
     Route: 064
     Dates: end: 20110923

REACTIONS (2)
  - NEONATAL RESPIRATORY DEPRESSION [None]
  - MATERNAL DRUGS AFFECTING FOETUS [None]
